FAERS Safety Report 14722053 (Version 5)
Quarter: 2018Q4

REPORT INFORMATION
  Report Type: Report from Study
  Country: CL (occurrence: CL)
  Receive Date: 20180405
  Receipt Date: 20181006
  Transmission Date: 20190204
  Serious: Yes (Hospitalization)
  Sender: FDA-Public Use
  Company Number: CL-ROCHE-2099751

PATIENT
  Age: 54 Year
  Sex: Female

DRUGS (1)
  1. ACTEMRA [Suspect]
     Active Substance: TOCILIZUMAB
     Indication: RHEUMATOID ARTHRITIS
     Route: 058
     Dates: start: 20161229

REACTIONS (8)
  - Limb operation [Recovering/Resolving]
  - Conjunctivitis [Recovered/Resolved]
  - Injection site erythema [Unknown]
  - Injection site pruritus [Unknown]
  - Bronchitis [Recovered/Resolved]
  - Pain in extremity [Not Recovered/Not Resolved]
  - Skin tightness [Unknown]
  - Aphthous ulcer [Unknown]

NARRATIVE: CASE EVENT DATE: 20180321
